FAERS Safety Report 10042458 (Version 4)
Quarter: 2014Q3

REPORT INFORMATION
  Report Type: Spontaneous
  Country: BR (occurrence: BR)
  Receive Date: 20140327
  Receipt Date: 20140904
  Transmission Date: 20150326
  Serious: Yes (Other)
  Sender: FDA-Public Use
  Company Number: BR-ALLERGAN-1405781US

PATIENT
  Age: 74 Year
  Sex: Female

DRUGS (2)
  1. PRED MILD [Suspect]
     Active Substance: PREDNISOLONE ACETATE
     Indication: HERPES OPHTHALMIC
     Dosage: INSTILLED TWICE
     Route: 047
     Dates: start: 20130811
  2. ZOVIRAX [Concomitant]
     Active Substance: ACYCLOVIR
     Indication: HERPES VIRUS INFECTION

REACTIONS (9)
  - Trichiasis [Unknown]
  - Iris hypopigmentation [Recovering/Resolving]
  - Off label use [Unknown]
  - Eye ulcer [Unknown]
  - Skin hyperpigmentation [Unknown]
  - Chemical burns of eye [Unknown]
  - Eye irritation [Unknown]
  - Visual impairment [Recovering/Resolving]
  - Eyelid ptosis [Unknown]

NARRATIVE: CASE EVENT DATE: 2013
